FAERS Safety Report 25013051 (Version 1)
Quarter: 2025Q1

REPORT INFORMATION
  Report Type: Spontaneous
  Country: US (occurrence: US)
  Receive Date: 20250226
  Receipt Date: 20250226
  Transmission Date: 20250408
  Serious: Yes (Hospitalization, Other)
  Sender: MYLAN
  Company Number: US-MYLANLABS-2025M1016092

PATIENT
  Age: 5 Decade
  Sex: Male

DRUGS (14)
  1. METHOTREXATE [Suspect]
     Active Substance: METHOTREXATE
     Indication: Behcet^s syndrome
  2. PREDNISONE [Suspect]
     Active Substance: PREDNISONE
     Indication: Behcet^s syndrome
     Dosage: UNK, QD {DOSE: 10 TO 20MG}
  3. PREDNISONE [Suspect]
     Active Substance: PREDNISONE
  4. MYCOPHENOLATE MOFETIL [Suspect]
     Active Substance: MYCOPHENOLATE MOFETIL
     Indication: Behcet^s syndrome
  5. VANCOMYCIN HYDROCHLORIDE [Suspect]
     Active Substance: VANCOMYCIN HYDROCHLORIDE
     Indication: Behcet^s syndrome
  6. COTRIMOXAZOLE [Suspect]
     Active Substance: SULFAMETHOXAZOLE\TRIMETHOPRIM
     Indication: Behcet^s syndrome
  7. AZATHIOPRINE [Suspect]
     Active Substance: AZATHIOPRINE
     Indication: Behcet^s syndrome
  8. ADALIMUMAB [Suspect]
     Active Substance: ADALIMUMAB
     Indication: Behcet^s syndrome
  9. PIPERACILLIN AND TAZOBACTAM [Suspect]
     Active Substance: PIPERACILLIN SODIUM\TAZOBACTAM SODIUM
     Indication: Behcet^s syndrome
  10. METRONIDAZOLE [Suspect]
     Active Substance: METRONIDAZOLE
     Indication: Behcet^s syndrome
  11. CEFTRIAXONE [Suspect]
     Active Substance: CEFTRIAXONE
     Indication: Behcet^s syndrome
  12. COLCHICINE [Concomitant]
     Active Substance: COLCHICINE
     Indication: Behcet^s syndrome
     Dosage: 0.6 MILLIGRAM, QD
  13. TOCILIZUMAB [Concomitant]
     Active Substance: TOCILIZUMAB
     Indication: Behcet^s syndrome
     Dosage: 162 MILLIGRAM, Q2W, (EVERY 14 DAYS)
  14. PILOCARPINE [Concomitant]
     Active Substance: PILOCARPINE
     Indication: Anisocoria

REACTIONS (7)
  - Subperiosteal abscess [Recovered/Resolved]
  - Drug ineffective [Unknown]
  - Osteoporosis [Unknown]
  - Diabetes mellitus [Unknown]
  - Glaucoma [Unknown]
  - Hyperlipidaemia [Unknown]
  - Off label use [Unknown]
